FAERS Safety Report 8057362-6 (Version None)
Quarter: 2012Q1

REPORT INFORMATION
  Report Type: 
  Country: None (occurrence: None)
  Receive Date: 20120119
  Receipt Date: 20120111
  Transmission Date: 20120608
  Serious: Yes (Life-Threatening, Hospitalization, Disabling, Other)
  Sender: FDA-Public Use
  Company Number: US-ABBOTT-12P-163-0891962-00

PATIENT
  Sex: Female

DRUGS (3)
  1. LAMICTAL [Suspect]
     Indication: PARTIAL SEIZURES
     Route: 048
     Dates: start: 19990101
  2. DEPAKOTE [Suspect]
     Indication: CONVULSION
     Route: 065
  3. IMMUNOSUPPRESSANT DRUGS [Suspect]
     Indication: PRODUCT USED FOR UNKNOWN INDICATION

REACTIONS (5)
  - HEPATIC FAILURE [None]
  - RASH [None]
  - SKIN DISCOLOURATION [None]
  - ARTHROPATHY [None]
  - LIVER INJURY [None]
